FAERS Safety Report 17683770 (Version 1)
Quarter: 2020Q2

REPORT INFORMATION
  Report Type: Report from Study
  Country: None (occurrence: NL)
  Receive Date: 20200420
  Receipt Date: 20200420
  Transmission Date: 20200714
  Serious: Yes (Other)
  Sender: FDA-Public Use
  Company Number: NL-ABBVIE-20K-114-3228779-00

PATIENT
  Sex: Female

DRUGS (1)
  1. DUODOPA [Suspect]
     Active Substance: CARBIDOPA\LEVODOPA
     Indication: PARKINSON^S DISEASE
     Route: 050
     Dates: start: 20141211

REACTIONS (15)
  - Deep brain stimulation [Unknown]
  - Device occlusion [Recovered/Resolved]
  - Device alarm issue [Recovered/Resolved]
  - Obsessive-compulsive disorder [Unknown]
  - Aphasia [Unknown]
  - On and off phenomenon [Unknown]
  - Device issue [Recovered/Resolved]
  - Memory impairment [Unknown]
  - General physical health deterioration [Unknown]
  - Stoma site haemorrhage [Unknown]
  - Malaise [Recovering/Resolving]
  - Tremor [Unknown]
  - Hallucination [Unknown]
  - Fibroma [Unknown]
  - Dyskinesia [Recovering/Resolving]
